FAERS Safety Report 9848616 (Version 1)
Quarter: 2014Q1

REPORT INFORMATION
  Report Type: Spontaneous
  Country: US (occurrence: US)
  Receive Date: 20140128
  Receipt Date: 20140128
  Transmission Date: 20141002
  Serious: Yes (Hospitalization, Other)
  Sender: FDA-Public Use
  Company Number: PHEH2014US001734

PATIENT
  Sex: Female

DRUGS (1)
  1. EXELON PATCH [Suspect]
     Dosage: 9.5 MG, QD (ONE IN A DAY)
     Route: 062
     Dates: start: 201306

REACTIONS (7)
  - Muscle spasms [Unknown]
  - Pancreatic cyst [Unknown]
  - Head discomfort [Unknown]
  - Vomiting [Unknown]
  - Diarrhoea [Unknown]
  - Dementia [Unknown]
  - Memory impairment [Unknown]
